FAERS Safety Report 20941268 (Version 18)
Quarter: 2023Q4

REPORT INFORMATION
  Report Type: Spontaneous
  Country: CA (occurrence: CA)
  Receive Date: 20220609
  Receipt Date: 20231230
  Transmission Date: 20240110
  Serious: Yes (Other)
  Sender: FDA-Public Use
  Company Number: CA-CELLTRION INC.-2022CA001257

PATIENT

DRUGS (37)
  1. INFLECTRA [Suspect]
     Active Substance: INFLIXIMAB-DYYB
     Indication: Crohn^s disease
     Dosage: 5 MG/KG, 0, 2, 6 THEN EVERY 8 WEEKS, EVERY 8 WEEKS
     Route: 042
     Dates: start: 20201218
  2. INFLECTRA [Suspect]
     Active Substance: INFLIXIMAB-DYYB
     Dosage: 7500 UG/KG, 7.5MG/ML, EVERY 8 WEEKS
     Route: 042
     Dates: start: 20210325
  3. INFLECTRA [Suspect]
     Active Substance: INFLIXIMAB-DYYB
     Dosage: 7500 UG/KG,  7.5MG/ML, EVERY 8 WEEKS
     Route: 042
     Dates: start: 20211108
  4. INFLECTRA [Suspect]
     Active Substance: INFLIXIMAB-DYYB
     Dosage: 7500 UG/KG, 7.5MG/ML, EVERY 8 WEEKS
     Route: 042
     Dates: start: 20220302
  5. INFLECTRA [Suspect]
     Active Substance: INFLIXIMAB-DYYB
     Dosage: 7500 UG/KG, 7.5MG/ML, EVERY 4 WEEKS, 7.5 MG/KG
     Route: 042
     Dates: start: 20220331
  6. INFLECTRA [Suspect]
     Active Substance: INFLIXIMAB-DYYB
     Dosage: 7500 UG/KG, EVERY 4 WEEKS, 7.5 MG/KG
     Route: 042
     Dates: start: 20220331
  7. INFLECTRA [Suspect]
     Active Substance: INFLIXIMAB-DYYB
     Dosage: 7500 UG/KG, 7.5MG/ML, EVERY 4 WEEKS
     Route: 042
     Dates: start: 20220427
  8. INFLECTRA [Suspect]
     Active Substance: INFLIXIMAB-DYYB
     Dosage: 7500 UG/KG, 7.5MG/ML, EVERY 4 WEEKS
     Route: 042
     Dates: start: 20220525
  9. INFLECTRA [Suspect]
     Active Substance: INFLIXIMAB-DYYB
     Dosage: 7500 UG/KG, 7.5MG/ML, EVERY 4 WEEKS
     Route: 042
     Dates: start: 20220525
  10. INFLECTRA [Suspect]
     Active Substance: INFLIXIMAB-DYYB
     Dosage: 7500 UG/KG, 7.5MG/ML, EVERY 4 WEEKS
     Route: 042
     Dates: start: 20220708
  11. INFLECTRA [Suspect]
     Active Substance: INFLIXIMAB-DYYB
     Dosage: 7500 UG/KG, 7.5MG/KG, EVERY 4 WEEKS
     Route: 042
     Dates: start: 20220803
  12. INFLECTRA [Suspect]
     Active Substance: INFLIXIMAB-DYYB
     Dosage: 7500 UG/KG, 7.5MG/KG, EVERY 4 WEEKS
     Route: 042
     Dates: start: 20220909
  13. INFLECTRA [Suspect]
     Active Substance: INFLIXIMAB-DYYB
     Dosage: 7500 UG/KG, 7.5MG/KG, EVERY 4 WEEKS
     Route: 042
     Dates: start: 20221007
  14. INFLECTRA [Suspect]
     Active Substance: INFLIXIMAB-DYYB
     Dosage: 533 MG, (SUPPOSED TO RECEIVE 7.5 MG/KG), EVERY 4 WEEKS
     Route: 042
     Dates: start: 20221102
  15. INFLECTRA [Suspect]
     Active Substance: INFLIXIMAB-DYYB
     Dosage: 533 MG, (SUPPOSED TO RECEIVE 7.5 MG/KG), EVERY 4 WEEKS
     Route: 042
     Dates: start: 20221102
  16. INFLECTRA [Suspect]
     Active Substance: INFLIXIMAB-DYYB
     Dosage: 533 MG, (SUPPOSED TO RECEIVE 7.5 MG/KG), EVERY 4 WEEKS
     Route: 042
     Dates: start: 20221102
  17. INFLECTRA [Suspect]
     Active Substance: INFLIXIMAB-DYYB
     Dosage: 533 MG, (SUPPOSED TO RECEIVE 7.5 MG/KG), EVERY 4 WEEKS
     Route: 042
     Dates: start: 20221102
  18. INFLECTRA [Suspect]
     Active Substance: INFLIXIMAB-DYYB
     Dosage: 533 MG, (SUPPOSED TO RECEIVE 7.5 MG/KG), EVERY 4 WEEKS
     Route: 042
     Dates: start: 20221102
  19. INFLECTRA [Suspect]
     Active Substance: INFLIXIMAB-DYYB
     Dosage: 533 MG, (SUPPOSED TO RECEIVE 7.5 MG/KG), EVERY 4 WEEKS
     Route: 042
     Dates: start: 20221102
  20. INFLECTRA [Suspect]
     Active Substance: INFLIXIMAB-DYYB
     Dosage: 533 MG, (SUPPOSED TO RECEIVE 7.5 MG/KG), EVERY 4 WEEKS
     Route: 042
     Dates: start: 20221129
  21. INFLECTRA [Suspect]
     Active Substance: INFLIXIMAB-DYYB
     Dosage: 7500 UG/KG (7.5MG/KG), EVERY 4 WEEKS
     Route: 042
     Dates: start: 20221228
  22. INFLECTRA [Suspect]
     Active Substance: INFLIXIMAB-DYYB
     Dosage: 7500 UG/KG (7.5MG/KG), EVERY 4 WEEKS
     Route: 042
     Dates: start: 20230121
  23. INFLECTRA [Suspect]
     Active Substance: INFLIXIMAB-DYYB
     Dosage: 7500 UG/KG (7.5MG/KG), EVERY 4 WEEKS
     Route: 042
     Dates: start: 20230131
  24. INFLECTRA [Suspect]
     Active Substance: INFLIXIMAB-DYYB
     Dosage: 532.5 MG, EVERY 4 WEEKS
     Route: 042
     Dates: start: 20230306
  25. INFLECTRA [Suspect]
     Active Substance: INFLIXIMAB-DYYB
     Dosage: 532.5 MG, EVERY 4 WEEKS
     Route: 042
     Dates: start: 20230501
  26. INFLECTRA [Suspect]
     Active Substance: INFLIXIMAB-DYYB
     Dosage: 532.5MG(7.5MG/KG), EVERY 4 WEEKS
     Dates: start: 20230531
  27. INFLECTRA [Suspect]
     Active Substance: INFLIXIMAB-DYYB
     Dosage: 532.5MG(7.5MG/KG), EVERY 4 WEEKS
     Route: 042
     Dates: start: 20230531
  28. INFLECTRA [Suspect]
     Active Substance: INFLIXIMAB-DYYB
     Dosage: 547.5 MG, EVERY 4 WEEKS
     Route: 042
     Dates: start: 20230706
  29. INFLECTRA [Suspect]
     Active Substance: INFLIXIMAB-DYYB
     Dosage: 7.5 MG/KG, EVERY 4 WEEKS
     Route: 042
     Dates: start: 20230731
  30. INFLECTRA [Suspect]
     Active Substance: INFLIXIMAB-DYYB
     Dosage: 540 MG, AFTER 8 WEEKS AND 1 DAY
     Route: 042
     Dates: start: 20230926
  31. INFLECTRA [Suspect]
     Active Substance: INFLIXIMAB-DYYB
     Dosage: 7500 UG/KG,EVERY 4 WEEK
     Route: 042
     Dates: start: 20231025
  32. INFLECTRA [Suspect]
     Active Substance: INFLIXIMAB-DYYB
     Dosage: 7500 UG/KG, 7.5MG/KG, EVERY 4 WEEKS
     Route: 042
     Dates: start: 20231124
  33. INFLECTRA [Suspect]
     Active Substance: INFLIXIMAB-DYYB
     Dosage: 7500 UG/KG, EVERY 4 WEEK (585 MG, AFTER 3 WEEKS AND 6 DAYS)
     Route: 042
     Dates: start: 20231221
  34. PENICILLIN G [Concomitant]
     Active Substance: PENICILLIN G
     Indication: Streptococcal infection
     Dosage: 2 DF, 2X/DAY (FOR 10 DAYS -STREPTOCCOCUS)
     Dates: start: 20220728
  35. CELECOXIB [Concomitant]
     Active Substance: CELECOXIB
     Dosage: 1 DF
  36. CONCERTA [Concomitant]
     Active Substance: METHYLPHENIDATE HYDROCHLORIDE
     Dosage: 1 DF
  37. ZOPICLONE [Concomitant]
     Active Substance: ZOPICLONE
     Dosage: 1 DF

REACTIONS (18)
  - Scar [Unknown]
  - Condition aggravated [Not Recovered/Not Resolved]
  - Gingival graft [Recovering/Resolving]
  - Therapeutic response shortened [Unknown]
  - Wound haemorrhage [Unknown]
  - Erythema [Unknown]
  - Weight decreased [Unknown]
  - COVID-19 [Unknown]
  - Arthralgia [Not Recovered/Not Resolved]
  - Fatigue [Not Recovered/Not Resolved]
  - Malaise [Unknown]
  - Mucous stools [Unknown]
  - Pharyngitis streptococcal [Recovering/Resolving]
  - Streptococcal infection [Recovered/Resolved]
  - Product availability issue [Unknown]
  - Off label use [Unknown]
  - Off label use [Unknown]
  - Inappropriate schedule of product administration [Unknown]

NARRATIVE: CASE EVENT DATE: 20220101
